FAERS Safety Report 20447576 (Version 1)
Quarter: 2022Q1

REPORT INFORMATION
  Report Type: Report from Study
  Country: US (occurrence: US)
  Receive Date: 20220209
  Receipt Date: 20220209
  Transmission Date: 20220423
  Serious: Yes (Hospitalization, Other)
  Sender: FDA-Public Use
  Company Number: US-ABBVIE-22K-163-4270795-00

PATIENT
  Sex: Female

DRUGS (3)
  1. VENCLEXTA [Suspect]
     Active Substance: VENETOCLAX
     Indication: Neoplasm malignant
     Dosage: TAKE 4 TABLET(S) BY MOUTH (400MG) EVERY DAY WITH MEALS (AFTER RAMP UP)
     Route: 048
  2. VENCLEXTA [Suspect]
     Active Substance: VENETOCLAX
     Dosage: TAKE 1 TABLET BY MOUTH EVERY DAY WITH A MEAL ON DAYS 8-10
     Route: 048
     Dates: start: 20211123, end: 20211125
  3. VENCLEXTA [Suspect]
     Active Substance: VENETOCLAX
     Dosage: TAKE 2 TABLET(S) BY MOUTH EVERY DAY WITH A MEAL ON DAYS 5-7
     Route: 048
     Dates: start: 20211120, end: 20211122

REACTIONS (2)
  - Fracture [Unknown]
  - Leukaemia [Unknown]
